FAERS Safety Report 19553180 (Version 1)
Quarter: 2021Q3

REPORT INFORMATION
  Report Type: Spontaneous
  Country: US (occurrence: US)
  Receive Date: 20210715
  Receipt Date: 20210715
  Transmission Date: 20211014
  Serious: Yes (Other)
  Sender: FDA-Public Use
  Company Number: NVSC2020US349955

PATIENT
  Sex: Female

DRUGS (15)
  1. FLUOROURACIL. [Suspect]
     Active Substance: FLUOROURACIL
     Indication: PIK3CA-ACTIVATED MUTATION
  2. AVASTIN [Suspect]
     Active Substance: BEVACIZUMAB
     Indication: COLORECTAL CANCER METASTATIC
     Dosage: UNK
     Route: 065
  3. AVASTIN [Suspect]
     Active Substance: BEVACIZUMAB
     Indication: PIK3CA-ACTIVATED MUTATION
  4. OXALIPLATIN. [Suspect]
     Active Substance: OXALIPLATIN
     Indication: COLORECTAL CANCER METASTATIC
     Route: 065
  5. FOLINIC ACID [Suspect]
     Active Substance: LEUCOVORIN
     Indication: PIK3CA-ACTIVATED MUTATION
  6. FOLINIC ACID [Suspect]
     Active Substance: LEUCOVORIN
     Indication: K-RAS GENE MUTATION
  7. AVASTIN [Suspect]
     Active Substance: BEVACIZUMAB
     Indication: K-RAS GENE MUTATION
  8. LONSURF [Suspect]
     Active Substance: TIPIRACIL HYDROCHLORIDE\TRIFLURIDINE
     Indication: COLORECTAL CANCER METASTATIC
     Dosage: UNK
     Route: 065
  9. OXALIPLATIN. [Suspect]
     Active Substance: OXALIPLATIN
     Indication: PIK3CA-ACTIVATED MUTATION
  10. OXALIPLATIN. [Suspect]
     Active Substance: OXALIPLATIN
     Indication: K-RAS GENE MUTATION
  11. FLUOROURACIL. [Suspect]
     Active Substance: FLUOROURACIL
     Indication: K-RAS GENE MUTATION
  12. FOLINIC ACID [Suspect]
     Active Substance: LEUCOVORIN
     Indication: COLORECTAL CANCER METASTATIC
     Dosage: UNK
     Route: 065
  13. LONSURF [Suspect]
     Active Substance: TIPIRACIL HYDROCHLORIDE\TRIFLURIDINE
     Indication: K-RAS GENE MUTATION
  14. FLUOROURACIL. [Suspect]
     Active Substance: FLUOROURACIL
     Indication: COLORECTAL CANCER METASTATIC
     Dosage: UNK
     Route: 065
  15. LONSURF [Suspect]
     Active Substance: TIPIRACIL HYDROCHLORIDE\TRIFLURIDINE
     Indication: PIK3CA-ACTIVATED MUTATION

REACTIONS (5)
  - Treatment failure [Unknown]
  - Malignant neoplasm progression [Unknown]
  - Metastases to liver [Unknown]
  - Metastases to pelvis [Unknown]
  - Colorectal cancer metastatic [Unknown]
